FAERS Safety Report 10733086 (Version 1)
Quarter: 2015Q1

REPORT INFORMATION
  Report Type: Spontaneous
  Country: BR (occurrence: BR)
  Receive Date: 20150123
  Receipt Date: 20150123
  Transmission Date: 20150721
  Serious: Yes (Hospitalization, Other)
  Sender: FDA-Public Use
  Company Number: BR-PFIZER INC-2015025051

PATIENT
  Age: 48 Year
  Sex: Female
  Weight: 59 kg

DRUGS (1)
  1. LYRICA [Suspect]
     Active Substance: PREGABALIN
     Indication: PAIN IN EXTREMITY
     Dosage: 1 CAPSULE OF 75 MG, DAILY
     Route: 048
     Dates: start: 20150116, end: 20150117

REACTIONS (10)
  - Abdominal discomfort [Unknown]
  - Abdominal pain [Recovering/Resolving]
  - Headache [Not Recovered/Not Resolved]
  - Malaise [Unknown]
  - Dysgeusia [Unknown]
  - Abdominal pain upper [Not Recovered/Not Resolved]
  - Constipation [Unknown]
  - Drug intolerance [Unknown]
  - Dizziness [Unknown]
  - Vomiting [Unknown]

NARRATIVE: CASE EVENT DATE: 20150117
